FAERS Safety Report 25412434 (Version 2)
Quarter: 2025Q2

REPORT INFORMATION
  Report Type: Spontaneous
  Country: ES (occurrence: ES)
  Receive Date: 20250609
  Receipt Date: 20250610
  Transmission Date: 20250717
  Serious: Yes (Life-Threatening, Hospitalization)
  Sender: PFIZER
  Company Number: None

PATIENT
  Age: 63 Year
  Sex: Male

DRUGS (5)
  1. ADCETRIS [Suspect]
     Active Substance: BRENTUXIMAB VEDOTIN
     Indication: Hodgkin^s disease
     Route: 042
     Dates: start: 20250423, end: 20250519
  2. ENALAPRIL MALEATE [Concomitant]
     Active Substance: ENALAPRIL MALEATE
     Indication: Cardiac failure chronic
     Dosage: 20 MILLIGRAM, QD
     Route: 048
     Dates: start: 20250415, end: 20250506
  3. BENDAMUSTINE HYDROCHLORIDE [Concomitant]
     Active Substance: BENDAMUSTINE HYDROCHLORIDE
     Indication: Hodgkin^s disease
     Route: 042
     Dates: start: 20250423, end: 20250424
  4. SULFAMETHOXAZOLE\TRIMETHOPRIM [Concomitant]
     Active Substance: SULFAMETHOXAZOLE\TRIMETHOPRIM
     Indication: Antibiotic prophylaxis
     Dosage: 3 DOSAGE FORM, 1/WEEK
     Route: 048
     Dates: start: 20250423, end: 20250506
  5. ALLOPURINOL [Concomitant]
     Active Substance: ALLOPURINOL
     Indication: Leukaemia
     Route: 048
     Dates: start: 20160222, end: 20250506

REACTIONS (1)
  - Anaphylactic shock [Recovered/Resolved]

NARRATIVE: CASE EVENT DATE: 20250519
